FAERS Safety Report 9270313 (Version 2)
Quarter: 2013Q2

REPORT INFORMATION
  Report Type: Report from Study
  Country: US (occurrence: US)
  Receive Date: 20130503
  Receipt Date: 20130508
  Transmission Date: 20140414
  Serious: Yes (Hospitalization, Other)
  Sender: FDA-Public Use
  Company Number: US-ABBOTT-13P-163-1081646-00

PATIENT
  Age: 86 Year
  Sex: Female
  Weight: 49.94 kg

DRUGS (2)
  1. HUMIRA [Suspect]
     Indication: RHEUMATOID ARTHRITIS
     Dates: start: 2010, end: 2011
  2. HUMIRA [Suspect]
     Dates: start: 2011, end: 201302

REACTIONS (3)
  - Cough [Recovering/Resolving]
  - Lung adenocarcinoma [Not Recovered/Not Resolved]
  - Arthritis [Recovered/Resolved]
